FAERS Safety Report 4383599-3 (Version None)
Quarter: 2004Q2

REPORT INFORMATION
  Report Type: 
  Country: None (occurrence: None)
  Receive Date: 20040618
  Receipt Date: 20040603
  Transmission Date: 20050107
  Serious: Yes (Hospitalization)
  Sender: FDA-Public Use
  Company Number: 2004-BP-02531BP

PATIENT
  Age: 52 Year
  Sex: Male

DRUGS (4)
  1. VIRAMUNE [Suspect]
     Indication: HIV INFECTION
     Dosage: 400 MG, PO
     Route: 048
     Dates: start: 20040301, end: 20040301
  2. LIPITOR [Concomitant]
  3. PAXIL [Concomitant]
  4. CLONAZEPAM [Concomitant]

REACTIONS (7)
  - HEPATOMEGALY [None]
  - INFLUENZA LIKE ILLNESS [None]
  - LIVER FUNCTION TEST ABNORMAL [None]
  - MUCOSAL INFLAMMATION [None]
  - RASH MACULAR [None]
  - RASH SCALY [None]
  - SYNCOPE [None]
